FAERS Safety Report 5806609-2 (Version None)
Quarter: 2008Q3

REPORT INFORMATION
  Report Type: 
  Country: None (occurrence: None)
  Receive Date: 20080710
  Receipt Date: 20080630
  Transmission Date: 20090109
  Serious: Yes (Hospitalization)
  Sender: FDA-Public Use
  Company Number: PHEH2008US05868

PATIENT
  Sex: Female

DRUGS (8)
  1. RECLAST [Suspect]
     Indication: OSTEOPOROSIS
     Dosage: 5 MG/100ML, ONCE/SINGLE
     Route: 017
     Dates: start: 20080625
  2. ASPIRIN [Concomitant]
  3. PRAVACHOL [Concomitant]
  4. ZETIA [Concomitant]
  5. NORVASC [Concomitant]
  6. PROTONIX [Concomitant]
  7. LUNESTA [Concomitant]
  8. XANAX [Concomitant]

REACTIONS (1)
  - HEART RATE INCREASED [None]
